FAERS Safety Report 11277761 (Version 2)
Quarter: 2015Q3

REPORT INFORMATION
  Report Type: Report from Study
  Country: US (occurrence: US)
  Receive Date: 20150716
  Receipt Date: 20150814
  Transmission Date: 20151125
  Serious: Yes (Other)
  Sender: FDA-Public Use
  Company Number: US-ABBVIE-15P-163-1426100-00

PATIENT
  Age: 30 Year
  Sex: Female

DRUGS (2)
  1. LUPRON DEPOT [Suspect]
     Active Substance: LEUPROLIDE ACETATE
     Indication: ENDOMETRIOSIS
     Route: 065
     Dates: start: 19950627, end: 19950628
  2. CELEXA [Concomitant]
     Active Substance: CITALOPRAM HYDROBROMIDE
     Indication: DEPRESSION
     Route: 048

REACTIONS (7)
  - Depression [Not Recovered/Not Resolved]
  - Laparoscopy [Unknown]
  - Pelvic pain [Not Recovered/Not Resolved]
  - Hysterectomy [Recovered/Resolved]
  - Tympanoplasty [Recovered/Resolved]
  - Adhesion [Unknown]
  - Endometriosis [Unknown]

NARRATIVE: CASE EVENT DATE: 20071101
